FAERS Safety Report 6873452-5 (Version None)
Quarter: 2010Q3

REPORT INFORMATION
  Report Type: 
  Country: None (occurrence: None)
  Receive Date: 20100723
  Receipt Date: 20090120
  Transmission Date: 20110219
  Serious: No
  Sender: FDA-Public Use
  Company Number: US-PFIZER INC-2009159532

PATIENT
  Sex: Female
  Weight: 71.7 kg

DRUGS (6)
  1. CHANTIX [Suspect]
     Indication: SMOKING CESSATION THERAPY
     Dosage: UNK
     Route: 048
     Dates: start: 20071201
  2. XANAX [Concomitant]
     Dosage: UNK
  3. ANTIHYPERTENSIVES [Concomitant]
     Indication: HYPERTENSION
     Dosage: UNK
  4. DRUG, UNSPECIFIED [Concomitant]
     Indication: PALPITATIONS
     Dosage: UNK
  5. PROPAL [Concomitant]
     Dosage: UNK
  6. LIPITOR [Concomitant]
     Indication: BLOOD CHOLESTEROL INCREASED
     Dosage: UNK

REACTIONS (1)
  - TREMOR [None]
